FAERS Safety Report 15288227 (Version 1)
Quarter: 2018Q3

REPORT INFORMATION
  Report Type: Spontaneous
  Country: US (occurrence: US)
  Receive Date: 20180802
  Receipt Date: 20180802
  Transmission Date: 20181010
  Serious: Yes (Hospitalization)
  Sender: FDA-Public Use
  Company Number: None

PATIENT
  Age: 66 Year
  Sex: Male
  Weight: 61.2 kg

DRUGS (6)
  1. UROSEMIDE (LASIX) [Concomitant]
  2. LACTULOSE (DUPHALAC) [Concomitant]
  3. TRAMADOL (ULTRAM) [Concomitant]
  4. UREA (CARMOL 40) [Concomitant]
  5. REGORAFENIB. [Suspect]
     Active Substance: REGORAFENIB
     Route: 048
     Dates: start: 20180122
  6. SPIRONOLACTONE (ALDACTONE) [Concomitant]

REACTIONS (7)
  - Hepatic encephalopathy [None]
  - Mental status changes [None]
  - Disorientation [None]
  - Speech disorder [None]
  - Treatment noncompliance [None]
  - Aphasia [None]
  - Asterixis [None]

NARRATIVE: CASE EVENT DATE: 20180129
